FAERS Safety Report 7224276-0 (Version None)
Quarter: 2011Q1

REPORT INFORMATION
  Report Type: 
  Country: None (occurrence: None)
  Receive Date: 20110106
  Receipt Date: 20110106
  Transmission Date: 20110831
  Serious: Yes (Hospitalization)
  Sender: FDA-Public Use
  Company Number: None

PATIENT
  Age: 79 Year
  Sex: Female
  Weight: 37.6 kg

DRUGS (14)
  1. COUMADIN [Suspect]
     Indication: ATRIAL FIBRILLATION
     Dosage: 3MG DAILY PO
     Route: 048
  2. TRICOR [Concomitant]
  3. METHOTREXATE [Concomitant]
  4. PREDNISONE [Concomitant]
  5. CALCIUM +D [Concomitant]
  6. METOPROLOL TARTRATE [Concomitant]
  7. COLACE [Concomitant]
  8. LASIX [Concomitant]
  9. LIDODERM [Concomitant]
  10. PANTOPRAZOLE [Concomitant]
  11. CRESTOR [Concomitant]
  12. M.V.I. [Concomitant]
  13. DIGOXIN [Concomitant]
  14. HYDROXODONE - APAP [Concomitant]

REACTIONS (5)
  - EPISTAXIS [None]
  - COAGULOPATHY [None]
  - INTERNATIONAL NORMALISED RATIO INCREASED [None]
  - HAEMATURIA [None]
  - IRON DEFICIENCY ANAEMIA [None]
